FAERS Safety Report 7576012-6 (Version None)
Quarter: 2011Q2

REPORT INFORMATION
  Report Type: 
  Country: None (occurrence: None)
  Receive Date: 20110628
  Receipt Date: 20081218
  Transmission Date: 20111010
  Serious: Yes (Death, Other)
  Sender: FDA-Public Use
  Company Number: US-BAYER-200840724NA

PATIENT
  Age: 50 Year
  Sex: Male
  Weight: 68.027 kg

DRUGS (20)
  1. TENORMIN [Concomitant]
  2. ENALAPRIL MALEATE [Concomitant]
     Dosage: 10 MG, QD
     Route: 048
     Dates: start: 20050201, end: 20050501
  3. ANCEF [Concomitant]
     Dosage: 2 GM, UNK
     Route: 042
     Dates: start: 20050516
  4. SUFENTANIL CITRATE [Concomitant]
     Dosage: UNK
     Route: 042
     Dates: start: 20050516
  5. TRASYLOL [Suspect]
     Indication: MITRAL VALVE REPLACEMENT
     Dosage: 200 CC LOADING DOSE X 2, UNK
     Route: 040
     Dates: start: 20050516, end: 20050516
  6. TRASYLOL [Suspect]
     Dosage: AMICAR DRIP, UNK
     Route: 042
     Dates: start: 20050517
  7. LIPITOR [Concomitant]
     Dosage: 10 MG, QD
     Route: 048
  8. VERSED [Concomitant]
     Dosage: UNK
     Route: 042
     Dates: start: 20050516, end: 20050516
  9. PROTAMINE SULFATE [Concomitant]
     Dosage: 750 MG, UNK
     Route: 042
     Dates: start: 20050516, end: 20050516
  10. HEPARIN [Concomitant]
     Dosage: UNK
     Dates: start: 20050516, end: 20050516
  11. COREG [Concomitant]
     Indication: PREOPERATIVE CARE
     Dosage: 12.5 MG, BID
     Route: 048
     Dates: start: 20040101
  12. FORANE [Concomitant]
     Dosage: TITRATED, UNK
     Dates: start: 20050516, end: 20050516
  13. INSULIN [Concomitant]
     Dosage: 10 UNITS, UNK
     Route: 042
     Dates: start: 20050516, end: 20050516
  14. ASPIRIN [Concomitant]
     Indication: PREOPERATIVE CARE
     Dosage: ONCE DAILY
     Route: 048
     Dates: start: 20040101
  15. LASIX [Concomitant]
     Dosage: 20 MG, BID
     Route: 048
  16. LIDOCAINE [Concomitant]
     Dosage: 50 MG, UNK
     Route: 042
     Dates: start: 20050516, end: 20050516
  17. LIDOCAINE [Concomitant]
     Dosage: 100 MG, UNK
     Route: 042
     Dates: start: 20050516, end: 20050516
  18. VECURONIUM BROMIDE [Concomitant]
     Dosage: UNK
     Route: 042
     Dates: start: 20050516, end: 20050516
  19. TRASYLOL [Suspect]
     Indication: PRODUCT USED FOR UNKNOWN INDICATION
     Dosage: 1 ML, UNK
     Route: 042
     Dates: start: 20050516, end: 20050516
  20. TRASYLOL [Suspect]
     Dosage: 50 CC PER HOUR INFUSION, UNK
     Route: 042
     Dates: start: 20050516, end: 20050516

REACTIONS (12)
  - ANHEDONIA [None]
  - RENAL FAILURE [None]
  - STRESS [None]
  - INJURY [None]
  - DEATH [None]
  - ABASIA [None]
  - UNEVALUABLE EVENT [None]
  - PAIN [None]
  - ANXIETY [None]
  - FEAR [None]
  - MUSCULAR WEAKNESS [None]
  - EMOTIONAL DISTRESS [None]
